FAERS Safety Report 7425350-6 (Version None)
Quarter: 2011Q2

REPORT INFORMATION
  Report Type: 
  Country: None (occurrence: None)
  Receive Date: 20110420
  Receipt Date: 20110407
  Transmission Date: 20111010
  Serious: Yes (Hospitalization, Other)
  Sender: FDA-Public Use
  Company Number: PHEH2006US06354

PATIENT
  Sex: Male

DRUGS (44)
  1. BETAPACE [Concomitant]
  2. OXYCONTIN [Concomitant]
  3. SERZONE [Concomitant]
     Indication: DEPRESSION
  4. TENORMIN [Concomitant]
  5. BETAPACE [Concomitant]
     Indication: ARRHYTHMIA
  6. MAGNESIUM [Concomitant]
  7. DECADRON                                /NET/ [Concomitant]
  8. FELDENE [Concomitant]
  9. XALATAN [Concomitant]
  10. AREDIA [Suspect]
     Indication: MULTIPLE MYELOMA
     Dosage: 90 MG,UNK
     Route: 042
     Dates: start: 19970601
  11. KLONOPIN [Concomitant]
  12. LASIX [Concomitant]
  13. CELEBREX [Concomitant]
  14. LEXAPRO [Concomitant]
  15. FUROSEMIDE [Concomitant]
  16. PREDNISONE [Concomitant]
     Indication: ARTHRITIS
     Dosage: 5 MG, QD
     Dates: start: 19950901
  17. MELPHALAN [Concomitant]
  18. NITROGLYCERIN ^DAVID BULL^ [Concomitant]
     Indication: ANGINA PECTORIS
  19. FOLIC ACID [Concomitant]
  20. VENLAFAXINE HCL [Concomitant]
  21. AMIODARONE [Concomitant]
  22. TEMAZEPAM [Concomitant]
  23. AREDIA [Suspect]
     Dosage: 90 MG, QMO
     Dates: start: 20021201, end: 20030801
  24. SPIRONOLACTONE [Concomitant]
  25. STEROIDS NOS [Concomitant]
     Dosage: UNK
  26. ST. JOHN'S WORT [Concomitant]
  27. NITROSTAT [Concomitant]
  28. ZOMETA [Suspect]
     Indication: MULTIPLE MYELOMA
     Dosage: 4 MG, QMO
     Dates: start: 20031001, end: 20060411
  29. OXYCODONE [Concomitant]
  30. ZINC [Concomitant]
  31. PRILOSEC [Concomitant]
  32. ALDACTONE [Concomitant]
  33. MECLIZINE [Concomitant]
  34. BUMEX [Concomitant]
  35. TRUSOPT [Concomitant]
  36. LISINOPRIL [Concomitant]
  37. PLAVIX [Concomitant]
  38. ASPIRIN [Concomitant]
  39. DOBUTAMINE HCL [Concomitant]
  40. LORAZEPAM [Concomitant]
  41. POTASSIUM [Concomitant]
  42. COUMADIN [Concomitant]
  43. METOPROLOL [Concomitant]
  44. ELAVIL [Concomitant]

REACTIONS (100)
  - CARDIOMEGALY [None]
  - PSORIASIS [None]
  - ARTHROPATHY [None]
  - HYDROCELE [None]
  - ANKLE FRACTURE [None]
  - PROSTATITIS [None]
  - VITREOUS FLOATERS [None]
  - GLAUCOMA [None]
  - BONE DISORDER [None]
  - ATRIAL FIBRILLATION [None]
  - BLOOD IMMUNOGLOBULIN G INCREASED [None]
  - BACK PAIN [None]
  - VENOUS INSUFFICIENCY [None]
  - PERIPHERAL ARTERIAL OCCLUSIVE DISEASE [None]
  - TENDON INJURY [None]
  - ASPIRATION JOINT [None]
  - OEDEMA PERIPHERAL [None]
  - EUSTACHIAN TUBE DYSFUNCTION [None]
  - VISION BLURRED [None]
  - CARDIAC ASTHMA [None]
  - SPONDYLOLISTHESIS [None]
  - INTERVERTEBRAL DISC DEGENERATION [None]
  - WALKING AID USER [None]
  - EMBOLISM ARTERIAL [None]
  - OCULAR HYPERTENSION [None]
  - CHRONIC OBSTRUCTIVE PULMONARY DISEASE [None]
  - LORDOSIS [None]
  - NEUROPATHY PERIPHERAL [None]
  - ARTHRITIS [None]
  - DYSPNOEA EXERTIONAL [None]
  - OPEN WOUND [None]
  - ORAL NEOPLASM [None]
  - FRACTURE NONUNION [None]
  - LOSS OF CONSCIOUSNESS [None]
  - VENTRICULAR EXTRASYSTOLES [None]
  - DYSPHONIA [None]
  - BONE PAIN [None]
  - SKIN ULCER [None]
  - CARDIAC FAILURE CONGESTIVE [None]
  - OSTEOARTHRITIS [None]
  - PAIN IN EXTREMITY [None]
  - CELLULITIS [None]
  - RENAL FAILURE CHRONIC [None]
  - TEMPOROMANDIBULAR JOINT SYNDROME [None]
  - ATELECTASIS [None]
  - ANHEDONIA [None]
  - ANGINA UNSTABLE [None]
  - NEURALGIA [None]
  - FRACTURED SACRUM [None]
  - PAIN [None]
  - GASTROOESOPHAGEAL REFLUX DISEASE [None]
  - CARDIAC ARREST [None]
  - HAEMORRHAGE [None]
  - NAIL HYPERTROPHY [None]
  - JOINT RANGE OF MOTION DECREASED [None]
  - ODYNOPHAGIA [None]
  - MARROW HYPERPLASIA [None]
  - HAEMATOCHEZIA [None]
  - TENDON RUPTURE [None]
  - CATARACT [None]
  - NASAL SEPTUM DEVIATION [None]
  - DIPLOPIA [None]
  - WHEEZING [None]
  - DIZZINESS [None]
  - JOINT SWELLING [None]
  - CONJUNCTIVAL HAEMORRHAGE [None]
  - PARONYCHIA [None]
  - OSTEONECROSIS OF JAW [None]
  - PAIN IN JAW [None]
  - EDENTULOUS [None]
  - DEPRESSION [None]
  - BONE SWELLING [None]
  - TOBACCO USER [None]
  - ANAEMIA [None]
  - DECUBITUS ULCER [None]
  - ARTHRALGIA [None]
  - PLEURAL EFFUSION [None]
  - ARTERIOSCLEROSIS CORONARY ARTERY [None]
  - SYNCOPE [None]
  - DRY EYE [None]
  - VARICOCELE [None]
  - AORTIC ANEURYSM [None]
  - TOOTH LOSS [None]
  - GENERAL PHYSICAL HEALTH DETERIORATION [None]
  - ANXIETY [None]
  - CORONARY ARTERY DISEASE [None]
  - MASS [None]
  - INSOMNIA [None]
  - OSTEOPENIA [None]
  - FOOT DEFORMITY [None]
  - TINEA PEDIS [None]
  - FALL [None]
  - MOUTH ULCERATION [None]
  - EPIDIDYMAL CYST [None]
  - VENTRICULAR TACHYCARDIA [None]
  - TINNITUS [None]
  - KYPHOSIS [None]
  - BLOOD CREATININE INCREASED [None]
  - SINUSITIS [None]
  - EMPHYSEMA [None]
